FAERS Safety Report 6332794-2 (Version None)
Quarter: 2009Q3

REPORT INFORMATION
  Report Type: 
  Country: None (occurrence: None)
  Receive Date: 20090828
  Receipt Date: 20090821
  Transmission Date: 20100115
  Serious: Yes (Life-Threatening, Other)
  Sender: FDA-Public Use
  Company Number: B0590041A

PATIENT
  Sex: Female

DRUGS (5)
  1. ARIXTRA [Suspect]
     Dosage: 7.5MG PER DAY
     Route: 058
  2. KARDEGIC [Suspect]
     Indication: DRUG USE FOR UNKNOWN INDICATION
     Dosage: 75MG PER DAY
     Route: 048
  3. ALDALIX [Suspect]
     Indication: DRUG USE FOR UNKNOWN INDICATION
     Route: 065
  4. LEVOTHYROX [Concomitant]
     Indication: DRUG USE FOR UNKNOWN INDICATION
     Route: 065
  5. CRESTOR [Concomitant]
     Indication: DRUG USE FOR UNKNOWN INDICATION
     Route: 065

REACTIONS (5)
  - COMA [None]
  - DISORIENTATION [None]
  - HAEMATOMA [None]
  - HEMIPLEGIA [None]
  - INTRAVENTRICULAR HAEMORRHAGE [None]
